FAERS Safety Report 11195474 (Version 1)
Quarter: 2015Q2

REPORT INFORMATION
  Report Type: Spontaneous
  Country: US (occurrence: None)
  Receive Date: 20150615
  Receipt Date: 20150615
  Transmission Date: 20150821
  Serious: Yes (Other)
  Sender: FDA-Public Use
  Company Number: None

PATIENT
  Age: 49 Year
  Sex: Female

DRUGS (1)
  1. DAYTRANA [Suspect]
     Active Substance: METHYLPHENIDATE
     Indication: ATTENTION DEFICIT/HYPERACTIVITY DISORDER
     Dosage: 10 MG PATCHES OVER 9 HOURS
     Route: 062
     Dates: start: 20150530, end: 20150602

REACTIONS (2)
  - Therapy cessation [None]
  - Product adhesion issue [None]

NARRATIVE: CASE EVENT DATE: 20150601
